FAERS Safety Report 10151470 (Version 1)
Quarter: 2014Q2

REPORT INFORMATION
  Report Type: Spontaneous
  Country: ES (occurrence: ES)
  Receive Date: 20140502
  Receipt Date: 20140502
  Transmission Date: 20141212
  Serious: Yes (Other)
  Sender: FDA-Public Use
  Company Number: ES-VERTEX PHARMACEUTICALS INC-2014-002161

PATIENT
  Sex: Female

DRUGS (5)
  1. INCIVO [Suspect]
     Indication: HEPATITIS C
     Route: 048
  2. RIBAVIRIN [Suspect]
     Indication: HEPATITIS C
     Dosage: 600 MG, UNK
     Route: 065
  3. RIBAVIRIN [Suspect]
     Dosage: 1200 MG, UNK
     Route: 065
  4. PEG-INTERFERON [Suspect]
     Indication: HEPATITIS C
     Dosage: 90 ?G, UNK
     Route: 065
  5. PEG-INTERFERON [Suspect]
     Dosage: 180 ?G, UNK
     Route: 065

REACTIONS (2)
  - Neutropenia [Unknown]
  - Anaemia [Unknown]
